FAERS Safety Report 8229312-0 (Version None)
Quarter: 2012Q1

REPORT INFORMATION
  Report Type: 
  Country: None (occurrence: None)
  Receive Date: 20120322
  Receipt Date: 20120313
  Transmission Date: 20120608
  Serious: Yes (Disabling)
  Sender: FDA-Public Use
  Company Number: JP-BRISTOL-MYERS SQUIBB COMPANY-16456386

PATIENT
  Age: 65 Year
  Sex: Female

DRUGS (3)
  1. METFORMIN HCL [Suspect]
     Indication: DIABETES MELLITUS
     Route: 048
     Dates: start: 20111201
  2. PROPRANOLOL HYDROCHLORIDE [Concomitant]
  3. PRAVASTATIN SODIUM [Suspect]

REACTIONS (1)
  - HEPATITIS [None]
